FAERS Safety Report 8546469-2 (Version None)
Quarter: 2012Q3

REPORT INFORMATION
  Report Type: 
  Country: None (occurrence: None)
  Receive Date: 20120727
  Receipt Date: 20120111
  Transmission Date: 20120928
  Serious: No
  Sender: FDA-Public Use
  Company Number: US-ASTRAZENECA-2012SE02330

PATIENT
  Sex: Male

DRUGS (2)
  1. DEPAKOTE [Concomitant]
  2. SEROQUEL [Suspect]
     Route: 048

REACTIONS (2)
  - ADVERSE EVENT [None]
  - WHITE BLOOD CELL COUNT INCREASED [None]
